FAERS Safety Report 10240512 (Version 1)
Quarter: 2014Q2

REPORT INFORMATION
  Report Type: Spontaneous
  Country: JP (occurrence: JP)
  Receive Date: 20140617
  Receipt Date: 20140617
  Transmission Date: 20141212
  Serious: Yes (Hospitalization)
  Sender: FDA-Public Use
  Company Number: JP-009507513-1406JPN006938

PATIENT
  Age: 52 Year
  Sex: Male

DRUGS (5)
  1. PEGINTRON POWDER FOR INJECTION 100MICROG [Suspect]
     Indication: CHRONIC HEPATITIS C
     Dosage: 100 MICROGRAM, QW
     Route: 058
     Dates: start: 20140402, end: 20140521
  2. REBETOL [Suspect]
     Indication: CHRONIC HEPATITIS C
     Dosage: 800 MG, QD
     Route: 048
     Dates: start: 20140402, end: 20140507
  3. SIMEPREVIR [Suspect]
     Indication: CHRONIC HEPATITIS C
     Dosage: 100 MG, QD
     Route: 048
     Dates: start: 20140402, end: 20140527
  4. ECARD HD [Suspect]
     Indication: HYPERTENSION
     Dosage: 6.25 MG, QD
     Route: 048
     Dates: start: 201305, end: 20140527
  5. FAMOTIDINE [Concomitant]
     Indication: ABDOMINAL DISCOMFORT
     Route: 048

REACTIONS (4)
  - Hyponatraemia [Not Recovered/Not Resolved]
  - Vomiting [Unknown]
  - Decreased appetite [Unknown]
  - Nausea [Unknown]
